FAERS Safety Report 16344795 (Version 1)
Quarter: 2019Q2

REPORT INFORMATION
  Report Type: Spontaneous
  Country: CN (occurrence: CN)
  Receive Date: 20190522
  Receipt Date: 20190522
  Transmission Date: 20190711
  Serious: Yes (Other)
  Sender: FDA-Public Use
  Company Number: CN-ROCHE-2317633

PATIENT
  Age: 30 Year
  Sex: Male

DRUGS (17)
  1. 5-FLUOROURACIL [FLUOROURACIL] [Suspect]
     Active Substance: FLUOROURACIL
     Dosage: DAY1
     Route: 065
     Dates: start: 20180113
  2. CALCIUM FOLINATE [Suspect]
     Active Substance: LEUCOVORIN CALCIUM
     Dosage: DAY1
     Route: 065
     Dates: start: 20180113
  3. CALCIUM FOLINATE [Suspect]
     Active Substance: LEUCOVORIN CALCIUM
     Indication: RECTAL CANCER
     Dosage: DAY1
     Route: 065
     Dates: start: 20171122
  4. IRINOTECAN [Suspect]
     Active Substance: IRINOTECAN
     Dosage: DAY1
     Route: 065
     Dates: start: 20171230
  5. AVASTIN [Suspect]
     Active Substance: BEVACIZUMAB
     Indication: RECTAL CANCER
     Dosage: DAY1
     Route: 065
     Dates: start: 20171122
  6. CAPECITABINE. [Suspect]
     Active Substance: CAPECITABINE
     Indication: RECTAL CANCER
     Dosage: FROM DAY1 TO DAY14
     Route: 048
     Dates: start: 20170419
  7. OXALIPLATIN. [Suspect]
     Active Substance: OXALIPLATIN
     Indication: RECTAL CANCER
     Dosage: DAY1
     Route: 065
     Dates: start: 20170419
  8. 5-FLUOROURACIL [FLUOROURACIL] [Suspect]
     Active Substance: FLUOROURACIL
     Route: 065
     Dates: start: 20171122
  9. 5-FLUOROURACIL [FLUOROURACIL] [Suspect]
     Active Substance: FLUOROURACIL
     Dosage: DAY1
     Route: 065
     Dates: start: 20171230
  10. 5-FLUOROURACIL [FLUOROURACIL] [Suspect]
     Active Substance: FLUOROURACIL
     Route: 065
     Dates: start: 20171230
  11. IRINOTECAN [Suspect]
     Active Substance: IRINOTECAN
     Indication: RECTAL CANCER
     Dosage: DAY1
     Route: 065
     Dates: start: 20171122
  12. IRINOTECAN [Suspect]
     Active Substance: IRINOTECAN
     Dosage: DAY1
     Route: 065
     Dates: start: 20180113
  13. 5-FLUOROURACIL [FLUOROURACIL] [Suspect]
     Active Substance: FLUOROURACIL
     Dosage: DAY1
     Route: 065
     Dates: start: 20180113
  14. AVASTIN [Suspect]
     Active Substance: BEVACIZUMAB
     Dosage: DAY1
     Route: 065
     Dates: start: 20171230
  15. 5-FLUOROURACIL [FLUOROURACIL] [Suspect]
     Active Substance: FLUOROURACIL
     Indication: RECTAL CANCER
     Dosage: DAY1
     Route: 065
     Dates: start: 20171122
  16. CALCIUM FOLINATE [Suspect]
     Active Substance: LEUCOVORIN CALCIUM
     Dosage: DAY1
     Route: 065
     Dates: start: 20171230
  17. AVASTIN [Suspect]
     Active Substance: BEVACIZUMAB
     Dosage: DAY1
     Route: 065
     Dates: start: 20180113

REACTIONS (3)
  - Nausea [Unknown]
  - Vomiting [Unknown]
  - Bone marrow failure [Unknown]
